FAERS Safety Report 15260773 (Version 2)
Quarter: 2018Q3

REPORT INFORMATION
  Report Type: Report from Study
  Country: US (occurrence: US)
  Receive Date: 20180809
  Receipt Date: 20180917
  Transmission Date: 20181010
  Serious: No
  Sender: FDA-Public Use
  Company Number: PHEH2018US032610

PATIENT
  Age: 43 Year
  Sex: Female
  Weight: 96 kg

DRUGS (1)
  1. COSENTYX [Suspect]
     Active Substance: SECUKINUMAB
     Indication: ANKYLOSING SPONDYLITIS
     Dosage: 150 MG, QMO
     Route: 058
     Dates: start: 20171215

REACTIONS (2)
  - Feeling abnormal [Unknown]
  - Drug ineffective [Not Recovered/Not Resolved]
